FAERS Safety Report 8270888-5 (Version None)
Quarter: 2012Q2

REPORT INFORMATION
  Report Type: 
  Country: None (occurrence: None)
  Receive Date: 20120410
  Receipt Date: 20120410
  Transmission Date: 20120825
  Serious: Yes (Hospitalization, Other)
  Sender: FDA-Public Use
  Company Number: None

PATIENT
  Age: 51 Year
  Sex: Male
  Weight: 72.574 kg

DRUGS (2)
  1. PRADAXA [Concomitant]
  2. PRADAXA [Suspect]
     Dosage: 150MG
     Route: 048
     Dates: start: 20111208, end: 20120325

REACTIONS (3)
  - EPISTAXIS [None]
  - ANAL FISSURE [None]
  - ANAL HAEMORRHAGE [None]
